FAERS Safety Report 11820229 (Version 1)
Quarter: 2015Q4

REPORT INFORMATION
  Report Type: Spontaneous
  Country: US (occurrence: None)
  Receive Date: 20151209
  Receipt Date: 20151209
  Transmission Date: 20160305
  Serious: Yes (Hospitalization)
  Sender: FDA-Public Use
  Company Number: None

PATIENT
  Age: 78 Year
  Sex: Male
  Weight: 134 kg

DRUGS (16)
  1. COZAAR [Concomitant]
     Active Substance: LOSARTAN POTASSIUM
  2. ROXICODONE [Concomitant]
     Active Substance: OXYCODONE HYDROCHLORIDE
  3. PRAVACHOL [Concomitant]
     Active Substance: PRAVASTATIN SODIUM
  4. HUMALOG [Concomitant]
     Active Substance: INSULIN LISPRO
  5. JANUVI [Concomitant]
  6. ASA [Suspect]
     Active Substance: ASPIRIN
     Indication: ATRIAL FIBRILLATION
     Dosage: CHRONIC
     Route: 048
  7. WARFARIN [Suspect]
     Active Substance: WARFARIN
     Indication: ATRIAL FIBRILLATION
     Dosage: CHRONIC WITH RECENT INCREASE
     Route: 048
  8. SYMBICORT [Concomitant]
     Active Substance: BUDESONIDE\FORMOTEROL FUMARATE DIHYDRATE
  9. COLACE [Concomitant]
     Active Substance: DOCUSATE SODIUM
  10. TRICOR [Concomitant]
     Active Substance: FENOFIBRATE
  11. MVI [Concomitant]
     Active Substance: VITAMINS
  12. RISPERDAL [Concomitant]
     Active Substance: RISPERIDONE
  13. SENOKOT [Concomitant]
     Active Substance: SENNOSIDES
  14. AMLODIPINE [Concomitant]
     Active Substance: AMLODIPINE BESYLATE
  15. LASIX [Concomitant]
     Active Substance: FUROSEMIDE
  16. LANTUS [Concomitant]
     Active Substance: INSULIN GLARGINE

REACTIONS (4)
  - Fall [None]
  - International normalised ratio decreased [None]
  - Haemarthrosis [None]
  - Pain [None]

NARRATIVE: CASE EVENT DATE: 20150816
